FAERS Safety Report 8517493-0 (Version None)
Quarter: 2012Q3

REPORT INFORMATION
  Report Type: 
  Country: None (occurrence: None)
  Receive Date: 20120718
  Receipt Date: 20120704
  Transmission Date: 20120928
  Serious: Yes (Other)
  Sender: FDA-Public Use
  Company Number: RU-FRI-1000030597

PATIENT
  Age: 63 Year
  Sex: Female

DRUGS (3)
  1. NEBIVOLOL [Suspect]
     Indication: HYPERTENSION
     Dosage: 5 MG
     Route: 048
     Dates: end: 20120101
  2. PRESTARIUM [Concomitant]
  3. AMLODIPINE [Concomitant]

REACTIONS (1)
  - ARRHYTHMIA [None]
